FAERS Safety Report 6249118-1 (Version None)
Quarter: 2009Q2

REPORT INFORMATION
  Report Type: 
  Country: None (occurrence: None)
  Receive Date: 20090624
  Receipt Date: 20090624
  Transmission Date: 20091009
  Serious: Yes (Life-Threatening, Hospitalization, Congenital Anomaly, Other)
  Sender: FDA-Public Use
  Company Number: None

PATIENT
  Sex: Female
  Weight: 65.7716 kg

DRUGS (1)
  1. YAZ [Suspect]
     Indication: ACNE
     Dosage: DAILY BUCCAL
     Route: 002
     Dates: start: 20081227, end: 20090611

REACTIONS (3)
  - DEEP VEIN THROMBOSIS [None]
  - PALPITATIONS [None]
  - PULMONARY EMBOLISM [None]
